FAERS Safety Report 7897419-3 (Version None)
Quarter: 2011Q4

REPORT INFORMATION
  Report Type: 
  Country: None (occurrence: None)
  Receive Date: 20111028
  Receipt Date: 20110613
  Transmission Date: 20120403
  Serious: Yes (Other)
  Sender: FDA-Public Use
  Company Number: PHHY2011US48257

PATIENT
  Age: 47 Year
  Sex: Male

DRUGS (5)
  1. PRISTIQ [Concomitant]
  2. TRILEPTAL [Suspect]
     Indication: MOOD SWINGS
     Dosage: 300 MG IN MORNING AND 600 MG AT NIGHT, ORAL
     Route: 048
     Dates: start: 20110511, end: 20110511
  3. VISTARIL [Concomitant]
  4. TRAZODONE HCL [Concomitant]
  5. BUSPAR [Concomitant]

REACTIONS (2)
  - RASH ERYTHEMATOUS [None]
  - PHOTOSENSITIVITY REACTION [None]
